FAERS Safety Report 11232235 (Version 1)
Quarter: 2015Q3

REPORT INFORMATION
  Report Type: Spontaneous
  Country: FR (occurrence: FR)
  Receive Date: 20150701
  Receipt Date: 20150701
  Transmission Date: 20151125
  Serious: Yes (Death, Other)
  Sender: FDA-Public Use
  Company Number: FR-PFIZER INC-2015216173

PATIENT
  Age: 68 Year
  Sex: Male

DRUGS (4)
  1. EUPANTOL [Suspect]
     Active Substance: PANTOPRAZOLE SODIUM
     Dosage: 40 MG, DAILY
     Route: 048
     Dates: start: 201503
  2. SOLUPRED /00016201/ [Suspect]
     Active Substance: PREDNISOLONE
     Dosage: UNK
     Route: 065
     Dates: start: 201503
  3. XTANDI [Suspect]
     Active Substance: ENZALUTAMIDE
     Indication: PROSTATE CANCER
     Dosage: 40 MG, UNK
     Route: 048
     Dates: end: 20150429
  4. JEVTANA [Suspect]
     Active Substance: CABAZITAXEL
     Indication: PROSTATE CANCER
     Dosage: 60 MG, WEEKLY
     Route: 042
     Dates: start: 20150520, end: 20150520

REACTIONS (5)
  - Hepatic enzyme increased [Fatal]
  - Jaundice [Fatal]
  - Acute hepatic failure [Fatal]
  - Hepatitis cholestatic [Fatal]
  - Ascites [Fatal]

NARRATIVE: CASE EVENT DATE: 20150312
